FAERS Safety Report 17101809 (Version 1)
Quarter: 2019Q4

REPORT INFORMATION
  Report Type: Spontaneous
  Country: FR (occurrence: FR)
  Receive Date: 20191202
  Receipt Date: 20191202
  Transmission Date: 20200122
  Serious: Yes (Death, Congenital Anomaly, Other)
  Sender: FDA-Public Use
  Company Number: FR-MYLANLABS-2019M1117001

PATIENT
  Age: 13 Week

DRUGS (6)
  1. VINCRISTINE TEVA [Suspect]
     Active Substance: VINCRISTINE
     Indication: LYMPHOMA
     Dosage: 2 MILLIGRAM, Q3W
     Route: 064
     Dates: start: 20180316, end: 20180629
  2. DOXORUBICINE ACCORD [Suspect]
     Active Substance: DOXORUBICIN
     Indication: LYMPHOMA
     Dosage: 78 MILLIGRAM, Q3W
     Route: 064
     Dates: start: 20180316, end: 20180629
  3. CIPROFLOXACINE ACCORD [Suspect]
     Active Substance: CIPROFLOXACIN HYDROCHLORIDE
     Indication: PYELONEPHRITIS
     Dosage: UNK
     Route: 064
     Dates: start: 20190227, end: 20190308
  4. METHOTREXATE TEVA                  /00113801/ [Suspect]
     Active Substance: METHOTREXATE
     Indication: LYMPHOMA
     Dosage: 15 MILLIGRAM
     Route: 064
     Dates: start: 20180316, end: 20180316
  5. ENDOXAN                            /00021101/ [Suspect]
     Active Substance: CYCLOPHOSPHAMIDE
     Indication: LYMPHOMA
     Dosage: 1160 MILLIGRAM, Q3W
     Route: 064
     Dates: start: 20180316, end: 20180629
  6. PREDNISONE. [Suspect]
     Active Substance: PREDNISONE
     Indication: LYMPHOMA
     Dosage: UNK
     Route: 064
     Dates: start: 20180316, end: 20180629

REACTIONS (2)
  - Foetal exposure during pregnancy [Recovered/Resolved]
  - Congenital amputation [Fatal]

NARRATIVE: CASE EVENT DATE: 201905
